FAERS Safety Report 18571919 (Version 6)
Quarter: 2021Q2

REPORT INFORMATION
  Report Type: Spontaneous
  Country: AR (occurrence: AR)
  Receive Date: 20201202
  Receipt Date: 20210625
  Transmission Date: 20210717
  Serious: Yes (Other)
  Sender: FDA-Public Use
  Company Number: AR-MYLANLABS-2020M1011101

PATIENT
  Age: 30 Year
  Sex: Female

DRUGS (2)
  1. LAPENAX [Suspect]
     Active Substance: CLOZAPINE
     Indication: INTELLECTUAL DISABILITY
     Dosage: 300 MILLIGRAM
     Dates: start: 20161014
  2. LAPENAX [Suspect]
     Active Substance: CLOZAPINE
     Dosage: 900 MILLIGRAM, QD

REACTIONS (22)
  - Neutropenia [Recovered/Resolved]
  - Blood insulin increased [Recovered/Resolved]
  - Microcytosis [Unknown]
  - Blood triglycerides increased [Recovered/Resolved]
  - Monocyte count increased [Recovering/Resolving]
  - Haematocrit decreased [Recovered/Resolved]
  - Red blood cell count increased [Recovered/Resolved]
  - Lymphocyte count increased [Recovered/Resolved]
  - Blood cholesterol decreased [Recovered/Resolved]
  - Red blood cell schistocytes present [Unknown]
  - Mean cell haemoglobin decreased [Recovering/Resolving]
  - Eosinophil count decreased [Not Recovered/Not Resolved]
  - Mean cell haemoglobin concentration decreased [Recovering/Resolving]
  - Anisochromia [Unknown]
  - Mean cell volume decreased [Recovering/Resolving]
  - Anisocytosis [Unknown]
  - Red cell distribution width increased [Not Recovered/Not Resolved]
  - Hypochromasia [Not Recovered/Not Resolved]
  - Haemoglobin decreased [Recovering/Resolving]
  - Leukopenia [Recovered/Resolved]
  - Red blood cell elliptocytes present [Unknown]
  - Blood glucose increased [Recovered/Resolved]

NARRATIVE: CASE EVENT DATE: 20191120
